FAERS Safety Report 8289316-9 (Version None)
Quarter: 2012Q2

REPORT INFORMATION
  Report Type: 
  Country: None (occurrence: None)
  Receive Date: 20120417
  Receipt Date: 20120416
  Transmission Date: 20120825
  Serious: Yes (Death)
  Sender: FDA-Public Use
  Company Number: PHHY2012GB031811

PATIENT

DRUGS (2)
  1. GABAPENTIN [Suspect]
  2. BENZODIAZEPINES [Concomitant]

REACTIONS (2)
  - DRUG DEPENDENCE [None]
  - DEATH [None]
